FAERS Safety Report 5708559-9 (Version None)
Quarter: 2008Q2

REPORT INFORMATION
  Report Type: 
  Country: None (occurrence: None)
  Receive Date: 20080414
  Receipt Date: 20080414
  Transmission Date: 20081010
  Serious: Yes (Hospitalization)
  Sender: FDA-Public Use
  Company Number: None

PATIENT
  Age: 44 Year
  Sex: Male
  Weight: 84.37 kg

DRUGS (1)
  1. INSULIN [Suspect]
     Indication: DIABETES MELLITUS
     Dosage: EVERY DAY SQ
     Route: 058
     Dates: start: 20080123, end: 20080408

REACTIONS (6)
  - DERMATITIS CONTACT [None]
  - HYPERGLYCAEMIA [None]
  - NAUSEA [None]
  - PAIN [None]
  - RASH PRURITIC [None]
  - URTICARIA [None]
